FAERS Safety Report 6527290-3 (Version None)
Quarter: 2009Q4

REPORT INFORMATION
  Report Type: 
  Country: None (occurrence: None)
  Receive Date: 20091229
  Receipt Date: 20091120
  Transmission Date: 20100525
  Serious: Yes (Hospitalization)
  Sender: FDA-Public Use
  Company Number: GB-EBEWE-0486MTX09

PATIENT
  Sex: Female

DRUGS (2)
  1. METHOTREXATE [Suspect]
     Dosage: 1 DAY,
     Dates: start: 20090331
  2. ENBREL [Suspect]
     Indication: RHEUMATOID ARTHRITIS
     Dosage: 100 MG, SC
     Route: 058

REACTIONS (3)
  - CONCOMITANT DISEASE AGGRAVATED [None]
  - EMOTIONAL DISTRESS [None]
  - INTENTIONAL OVERDOSE [None]
